FAERS Safety Report 8162990-3 (Version None)
Quarter: 2012Q1

REPORT INFORMATION
  Report Type: 
  Country: None (occurrence: None)
  Receive Date: 20120224
  Receipt Date: 20120217
  Transmission Date: 20120608
  Serious: Yes (Hospitalization)
  Sender: FDA-Public Use
  Company Number: US-UCBSA-051890

PATIENT
  Sex: Female
  Weight: 113 kg

DRUGS (3)
  1. CIMZIA [Suspect]
     Route: 058
     Dates: start: 20081201, end: 20120101
  2. IRON [Concomitant]
     Indication: CROHN'S DISEASE
     Dosage: QD ;AS TOLERATED
     Route: 048
  3. ASACOL [Concomitant]
     Indication: CROHN'S DISEASE
     Route: 048

REACTIONS (2)
  - POST PROCEDURAL INFECTION [None]
  - FISTULA [None]
